FAERS Safety Report 4845332-8 (Version None)
Quarter: 2005Q4

REPORT INFORMATION
  Report Type: 
  Country: None (occurrence: None)
  Receive Date: 20051205
  Receipt Date: 20051129
  Transmission Date: 20060501
  Serious: Yes (Other)
  Sender: FDA-Public Use
  Company Number: IN-GLAXOSMITHKLINE-B0402132A

PATIENT
  Age: 4 Year
  Sex: Male
  Weight: 8 kg

DRUGS (5)
  1. ZIDOVUDINE [Suspect]
     Indication: HIV INFECTION
     Route: 065
  2. LAMIVUDINE [Suspect]
     Indication: HIV INFECTION
     Route: 065
  3. NEVIRAPINE [Suspect]
     Indication: HIV INFECTION
     Route: 065
  4. STAVUDINE [Suspect]
     Indication: HIV INFECTION
     Route: 065
  5. EFAVIRENZ [Suspect]
     Indication: HIV INFECTION
     Route: 065

REACTIONS (4)
  - BLOOD LACTIC ACID INCREASED [None]
  - DYSPNOEA [None]
  - LACTIC ACIDOSIS [None]
  - MENINGITIS [None]
